FAERS Safety Report 13104353 (Version 1)
Quarter: 2017Q1

REPORT INFORMATION
  Report Type: Spontaneous
  Country: FR (occurrence: FR)
  Receive Date: 20170111
  Receipt Date: 20170111
  Transmission Date: 20170428
  Serious: Yes (Hospitalization)
  Sender: FDA-Public Use
  Company Number: FR-AUROBINDO-AUR-APL-2017-00129

PATIENT
  Age: 81 Year
  Sex: Female

DRUGS (3)
  1. HEPARINE SODIUM PANPHARMA [Suspect]
     Active Substance: HEPARIN SODIUM
     Indication: ATRIAL FIBRILLATION
     Dosage: DAY 1: 15770 UI ; DAY 2: 12840 UI
     Route: 042
     Dates: start: 20161130, end: 20161203
  2. ASPEGIC [Suspect]
     Active Substance: ASPIRIN DL-LYSINE
     Indication: PRODUCT USED FOR UNKNOWN INDICATION
     Dosage: 100 MG, ONCE A DAY
     Route: 042
     Dates: start: 20161130, end: 20161201
  3. CLOPIDOGREL ARROW 75 MG FILM COATED TABLET [Suspect]
     Active Substance: CLOPIDOGREL BISULFATE
     Indication: TRANSIENT ISCHAEMIC ATTACK
     Dosage: 75 MG, ONCE A DAY
     Route: 048
     Dates: start: 20161121, end: 20161203

REACTIONS (3)
  - Haemorrhagic anaemia [Recovered/Resolved]
  - Muscle haemorrhage [Recovered/Resolved]
  - Atrial fibrillation [None]

NARRATIVE: CASE EVENT DATE: 20161203
